FAERS Safety Report 13814316 (Version 1)
Quarter: 2017Q3

REPORT INFORMATION
  Report Type: Spontaneous
  Country: US (occurrence: US)
  Receive Date: 20170727
  Receipt Date: 20170727
  Transmission Date: 20171127
  Serious: Yes (Hospitalization)
  Sender: FDA-Public Use
  Company Number: None

PATIENT
  Age: 45 Year
  Sex: Female
  Weight: 56.7 kg

DRUGS (1)
  1. NACL 0.9% B BRAUN [Suspect]
     Active Substance: SODIUM CHLORIDE
     Indication: CROHN^S DISEASE
     Dosage: 250ML Q6WEEKS IV
     Route: 042
     Dates: start: 20170530, end: 20170530

REACTIONS (2)
  - Device related infection [None]
  - Stenotrophomonas infection [None]

NARRATIVE: CASE EVENT DATE: 20170705
